APPROVED DRUG PRODUCT: VALPROIC ACID
Active Ingredient: VALPROIC ACID
Strength: 250MG
Dosage Form/Route: CAPSULE;ORAL
Application: A073484 | Product #001 | TE Code: AB
Applicant: BIONPHARMA INC
Approved: Jun 29, 1993 | RLD: No | RS: Yes | Type: RX